FAERS Safety Report 6467067-0 (Version None)
Quarter: 2009Q4

REPORT INFORMATION
  Report Type: 
  Country: None (occurrence: None)
  Receive Date: 20091202
  Receipt Date: 20091125
  Transmission Date: 20100525
  Serious: Yes (Other)
  Sender: FDA-Public Use
  Company Number: FR-PFIZER INC-2009294232

PATIENT
  Sex: Female

DRUGS (7)
  1. AROMASINE [Suspect]
     Indication: BREAST CANCER
     Dosage: UNK
  2. ALDACTAZINE [Suspect]
     Dosage: 0.5 DF, 1X/DAY
  3. LOPRESSOR [Suspect]
     Dosage: 200 MG, 1X/DAY
  4. LEVOTHYROXINE SODIUM [Suspect]
     Dosage: 1 DF, 1X/DAY
  5. MOPRAL [Suspect]
     Dosage: 1 DF, 1X/DAY
  6. EZETROL [Suspect]
     Dosage: 1 DF, 1X/DAY
  7. PREVISCAN [Suspect]
     Dosage: 20 MG, 1X/DAY

REACTIONS (5)
  - FATIGUE [None]
  - MYALGIA [None]
  - PULMONARY EMBOLISM [None]
  - SOMNOLENCE [None]
  - VERTIGO [None]
